FAERS Safety Report 4712992-1 (Version None)
Quarter: 2005Q3

REPORT INFORMATION
  Report Type: 
  Country: None (occurrence: None)
  Receive Date: 20050711
  Receipt Date: 20050630
  Transmission Date: 20060218
  Serious: No
  Sender: FDA-Public Use
  Company Number: A001-412-3798

PATIENT
  Age: 81 Year
  Sex: Male
  Weight: 76.8 kg

DRUGS (11)
  1. DONEPEZIL HCL [Suspect]
     Indication: COGNITIVE DISORDER
     Dosage: DOUBLEBLIND, 1 IN 1 D, ORAL
     Route: 048
     Dates: start: 20050518
  2. ERYTHROMYCIN [Concomitant]
  3. MATAMUCIL (PSYLLIUM HYDROPHILIC MUCILLOID) [Concomitant]
  4. LUTEINE (PROGESTERONE) [Concomitant]
  5. OCUVITE (OCUVITE) [Concomitant]
  6. ASPIRIN [Concomitant]
  7. VALIUM [Concomitant]
  8. BIO TEARS (TEARS PLUS) [Concomitant]
  9. AMBIEN [Concomitant]
  10. FLOMAX [Concomitant]
  11. DOXYCYCLINE [Concomitant]

REACTIONS (7)
  - INSOMNIA [None]
  - INTERVERTEBRAL DISC PROTRUSION [None]
  - MARROW HYPERPLASIA [None]
  - MUSCLE SPASMS [None]
  - MUSCULOSKELETAL DISCOMFORT [None]
  - MYELODYSPLASTIC SYNDROME [None]
  - NOCTURIA [None]
